FAERS Safety Report 6515909-2 (Version None)
Quarter: 2009Q4

REPORT INFORMATION
  Report Type: 
  Country: None (occurrence: None)
  Receive Date: 20091223
  Receipt Date: 20091217
  Transmission Date: 20100525
  Serious: Yes (Other)
  Sender: FDA-Public Use
  Company Number: US-BAYER-200917702BCC

PATIENT
  Age: 92 Year
  Sex: Female
  Weight: 77 kg

DRUGS (4)
  1. ALEVE (CAPLET) [Suspect]
     Indication: MUSCULOSKELETAL PAIN
     Dosage: TOTAL DAILY DOSE: 440 MG  UNIT DOSE: 220 MG
     Route: 048
     Dates: start: 20090801, end: 20091201
  2. AVAPRO [Concomitant]
     Route: 065
  3. LIPITOR [Concomitant]
     Route: 065
  4. EYE DROPS [Concomitant]
     Route: 065

REACTIONS (1)
  - ULCER HAEMORRHAGE [None]
